FAERS Safety Report 5621920-6 (Version None)
Quarter: 2008Q1

REPORT INFORMATION
  Report Type: 
  Country: None (occurrence: None)
  Receive Date: 20080206
  Receipt Date: 20080124
  Transmission Date: 20080703
  Serious: Yes (Hospitalization)
  Sender: FDA-Public Use
  Company Number: TPG2007A00779

PATIENT
  Age: 65 Year
  Sex: Female

DRUGS (7)
  1. COMPETACT (PIOGLITAZONE HYDROCHLORIDE, METFORMIN HYDROCHLORIDE) 15 MG [Suspect]
     Indication: TYPE 1 DIABETES MELLITUS
     Dosage: 15 MG PER ORAL
     Route: 048
     Dates: start: 20070801, end: 20071205
  2. LEVOFLOXACIN [Suspect]
     Dosage: PER ORAL
     Route: 048
  3. COTRIM FORTE (SULFAMETHOXAZOLE, TRIMETHOPRIM) TRIMETHOPRIM 160 MG/SULF [Suspect]
     Indication: PYELONEPHRITIS
     Dosage: PER ORAL
     Route: 048
     Dates: start: 20071101, end: 20071101
  4. NOVONORM (REPAGLINIDE) [Concomitant]
  5. RAMIPRIL [Concomitant]
  6. DOXEPIN HCL [Concomitant]
  7. BASAL INSULIN (INSULIN ISOPHANE HUMAN SEMISYNTHETIC) [Concomitant]

REACTIONS (2)
  - IDIOPATHIC THROMBOCYTOPENIC PURPURA [None]
  - THROMBOCYTOPENIA [None]
